FAERS Safety Report 7517098-4 (Version None)
Quarter: 2011Q2

REPORT INFORMATION
  Report Type: 
  Country: None (occurrence: None)
  Receive Date: 20110601
  Receipt Date: 20110316
  Transmission Date: 20111010
  Serious: Yes (Life-Threatening, Hospitalization)
  Sender: FDA-Public Use
  Company Number: US-BAYER-2011-023805

PATIENT
  Age: 68 Year
  Sex: Male
  Weight: 108.3 kg

DRUGS (12)
  1. DEXAMETHASONE [Suspect]
     Indication: ACUTE LYMPHOCYTIC LEUKAEMIA
     Dosage: 84 MG TOTAL DOSE
     Dates: start: 20110301, end: 20110306
  2. METHOTREXATE [Suspect]
     Dosage: 190 MG, DAY 1, ESCALATED BY 50% EACH CYCL TO MAXIMUM 225 MG/M2
     Route: 042
     Dates: start: 20110301, end: 20110301
  3. DEXAMETHASONE [Suspect]
     Dosage: 56 MG, UNK
     Dates: end: 20110314
  4. VINCRISTINE [Suspect]
     Dosage: 2 MG, UNK
     Dates: end: 20110312
  5. ALEMTUZUMAB 10/1ML [Suspect]
     Indication: ACUTE LYMPHOCYTIC LEUKAEMIA
     Dosage: 5 MG, UNK, DAYS 1, 4 AND 7
     Route: 058
     Dates: start: 20110301
  6. ASPARAGINASE [Suspect]
     Indication: ACUTE LYMPHOCYTIC LEUKAEMIA
     Dosage: 500 IU/KG, DAY 2
     Route: 030
     Dates: start: 20110302, end: 20110302
  7. METHOTREXATE [Suspect]
     Dosage: 230 MG, UNK
     Dates: end: 20110311
  8. ALEMTUZUMAB 10/1ML [Suspect]
     Dosage: 10 MG, UNK, DAYS 1, 4 AND 7
     Route: 058
     Dates: start: 20110301
  9. ASPARAGINASE [Suspect]
     Dosage: 52900 MG, UNK
     Dates: end: 20110312
  10. METHOTREXATE [Suspect]
     Indication: ACUTE LYMPHOCYTIC LEUKAEMIA
     Dosage: 190 MG, UNK
     Dates: start: 20110301, end: 20110301
  11. DEXAMETHASONE [Suspect]
     Dosage: 6 MG/M2, QD, DAYS 1-10
     Route: 048
     Dates: start: 20110301, end: 20110301
  12. VINCRISTINE [Suspect]
     Indication: ACUTE LYMPHOCYTIC LEUKAEMIA
     Dosage: 2 MG, DAY 2, BOLUS
     Route: 042
     Dates: start: 20110302, end: 20110302

REACTIONS (3)
  - LOCALISED INFECTION [None]
  - PNEUMONIA [None]
  - HYPERGLYCAEMIA [None]
